FAERS Safety Report 6937752-2 (Version None)
Quarter: 2010Q3

REPORT INFORMATION
  Report Type: 
  Country: None (occurrence: None)
  Receive Date: 20100820
  Receipt Date: 20100820
  Transmission Date: 20110219
  Serious: Yes (Hospitalization)
  Sender: FDA-Public Use
  Company Number: None

PATIENT
  Sex: Female
  Weight: 48.8 kg

DRUGS (3)
  1. ERWINIA ASPARAGINASE [Suspect]
     Dosage: 454200 IU
  2. METHOTREXATE [Suspect]
     Dosage: 30 MG
  3. VINCRISTINE SULFATE [Suspect]
     Dosage: 10 MG

REACTIONS (18)
  - ABDOMINAL PAIN LOWER [None]
  - ANAEMIA [None]
  - APHAGIA [None]
  - BLISTER [None]
  - CAECITIS [None]
  - HEPATIC ENZYME INCREASED [None]
  - LETHARGY [None]
  - MALAISE [None]
  - MOUTH ULCERATION [None]
  - MUCOSAL INFLAMMATION [None]
  - OEDEMA PERIPHERAL [None]
  - ORAL PAIN [None]
  - PAIN IN EXTREMITY [None]
  - PETECHIAE [None]
  - PYREXIA [None]
  - RASH GENERALISED [None]
  - SPEECH DISORDER [None]
  - THROMBOCYTOPENIA [None]
